FAERS Safety Report 6100562-2 (Version None)
Quarter: 2009Q1

REPORT INFORMATION
  Report Type: 
  Country: None (occurrence: None)
  Receive Date: 20090303
  Receipt Date: 20090217
  Transmission Date: 20090719
  Serious: Yes (Death, Hospitalization)
  Sender: FDA-Public Use
  Company Number: JP-ROCHE-557648

PATIENT
  Sex: Male
  Weight: 67 kg

DRUGS (1)
  1. PEGASYS [Suspect]
     Route: 058
     Dates: start: 20071023, end: 20080219

REACTIONS (2)
  - INTERSTITIAL LUNG DISEASE [None]
  - NEPHRITIS [None]
